FAERS Safety Report 5675843-7 (Version None)
Quarter: 2008Q1

REPORT INFORMATION
  Report Type: 
  Country: None (occurrence: None)
  Receive Date: 20080318
  Receipt Date: 20080310
  Transmission Date: 20080703
  Serious: Yes (Death, Hospitalization)
  Sender: FDA-Public Use
  Company Number: ALK_00557_2008

PATIENT
  Sex: Male
  Weight: 72.5755 kg

DRUGS (4)
  1. VIVITROL [Suspect]
     Indication: DRUG DEPENDENCE
     Dosage: (380 MG 1X/MONTH)
     Dates: start: 20071007, end: 20071031
  2. NALTREXONE HYDROCHLORIDE [Concomitant]
  3. CAMPRAL /01016802/ [Concomitant]
  4. NALTREXONE HYDROCHLORIDE [Concomitant]

REACTIONS (4)
  - ACCIDENT AT WORK [None]
  - DEEP VEIN THROMBOSIS [None]
  - LIMB INJURY [None]
  - NEOPLASM MALIGNANT [None]
